FAERS Safety Report 25406154 (Version 1)
Quarter: 2025Q2

REPORT INFORMATION
  Report Type: Spontaneous
  Country: CH (occurrence: CH)
  Receive Date: 20250606
  Receipt Date: 20250606
  Transmission Date: 20250716
  Serious: Yes (Other)
  Sender: SANOFI AVENTIS
  Company Number: None

PATIENT
  Age: 65 Year
  Sex: Female

DRUGS (15)
  1. TRAMADOL [Suspect]
     Active Substance: TRAMADOL
     Dates: start: 20250505, end: 20250505
  2. TRAMADOL [Suspect]
     Active Substance: TRAMADOL
     Dates: start: 20250511, end: 20250511
  3. IOHEXOL [Suspect]
     Active Substance: IOHEXOL
     Indication: Scan with contrast
     Dates: start: 20250427, end: 20250427
  4. IOHEXOL [Suspect]
     Active Substance: IOHEXOL
     Dates: start: 20250505, end: 20250505
  5. ENOXAPARIN SODIUM [Suspect]
     Active Substance: ENOXAPARIN SODIUM
     Dosage: 60 MG, Q12H
     Route: 058
     Dates: start: 20250506, end: 20250513
  6. FLUCONAZOLE [Suspect]
     Active Substance: FLUCONAZOLE
     Dosage: 200 MG, QD
     Route: 042
     Dates: start: 20250420, end: 20250509
  7. AMOXICILLIN\CLAVULANATE POTASSIUM [Suspect]
     Active Substance: AMOXICILLIN\CLAVULANATE POTASSIUM
     Dosage: 1.2 G, Q8H
     Route: 042
     Dates: start: 20250509, end: 20250510
  8. AMOXICILLIN\CLAVULANATE POTASSIUM [Suspect]
     Active Substance: AMOXICILLIN\CLAVULANATE POTASSIUM
     Dosage: 1.2 G, Q6H
     Route: 042
     Dates: start: 20250511, end: 20250511
  9. AMOXICILLIN\CLAVULANATE POTASSIUM [Suspect]
     Active Substance: AMOXICILLIN\CLAVULANATE POTASSIUM
     Route: 042
     Dates: start: 20250512, end: 20250512
  10. ACETAMINOPHEN [Suspect]
     Active Substance: ACETAMINOPHEN
     Dosage: 1 G, Q8H
     Dates: start: 20250423
  11. ESOMEPRAZOLE MAGNESIUM [Suspect]
     Active Substance: ESOMEPRAZOLE MAGNESIUM
     Dosage: 40 MG, QD
     Dates: start: 20250420, end: 20250513
  12. PIPERACILLIN SODIUM\TAZOBACTAM SODIUM [Suspect]
     Active Substance: PIPERACILLIN SODIUM\TAZOBACTAM SODIUM
     Dosage: 4.5 G, Q8H
     Route: 042
     Dates: start: 20250423, end: 20250509
  13. IBUPROFEN [Suspect]
     Active Substance: IBUPROFEN
     Dosage: 400 MG, Q8H
     Dates: start: 20250424, end: 20250509
  14. MIRABEGRON [Suspect]
     Active Substance: MIRABEGRON
     Dosage: 25 MG, QD
     Dates: start: 20250504
  15. HEPARIN [Suspect]
     Active Substance: HEPARIN SODIUM
     Route: 042
     Dates: start: 20250424, end: 20250506

REACTIONS (2)
  - Rash maculo-papular [Recovering/Resolving]
  - Eosinophilia [Recovering/Resolving]

NARRATIVE: CASE EVENT DATE: 20250506
